FAERS Safety Report 5111077-2 (Version None)
Quarter: 2006Q3

REPORT INFORMATION
  Report Type: 
  Country: None (occurrence: None)
  Receive Date: 20060922
  Receipt Date: 20050902
  Transmission Date: 20061208
  Serious: No
  Sender: FDA-Public Use
  Company Number: US-GLAXOSMITHKLINE-A0573627A

PATIENT
  Sex: Male

DRUGS (1)
  1. ABREVA [Suspect]
     Indication: DRUG USE FOR UNKNOWN INDICATION

REACTIONS (3)
  - GENITAL RASH [None]
  - PRURITUS GENITAL [None]
  - RASH PUSTULAR [None]
